FAERS Safety Report 18037111 (Version 1)
Quarter: 2020Q3

REPORT INFORMATION
  Report Type: Report from Study
  Country: FR (occurrence: FR)
  Receive Date: 20200717
  Receipt Date: 20200717
  Transmission Date: 20201103
  Serious: Yes (Death, Other)
  Sender: FDA-Public Use
  Company Number: FR-JNJFOC-20200716844

PATIENT
  Sex: Female

DRUGS (2)
  1. DOXORUBICIN HYDROCHLORIDE. [Suspect]
     Active Substance: DOXORUBICIN HYDROCHLORIDE
     Indication: OVARIAN CANCER
     Route: 042
  2. TRABECTEDIN [Suspect]
     Active Substance: TRABECTEDIN
     Indication: OVARIAN CANCER
     Route: 042

REACTIONS (16)
  - Gamma-glutamyltransferase increased [Unknown]
  - Renal failure [Fatal]
  - Respiratory failure [Fatal]
  - Neutropenia [Unknown]
  - Anaemia [Unknown]
  - Febrile neutropenia [Unknown]
  - Dyspnoea [Unknown]
  - General physical health deterioration [Unknown]
  - Septic shock [Unknown]
  - Thrombocytopenia [Unknown]
  - Asthenia [Unknown]
  - Infection [Unknown]
  - Alanine aminotransferase increased [Unknown]
  - Nausea [Unknown]
  - Vomiting [Unknown]
  - Aspartate aminotransferase increased [Unknown]
